FAERS Safety Report 7153237-5 (Version None)
Quarter: 2010Q4

REPORT INFORMATION
  Report Type: 
  Country: None (occurrence: None)
  Receive Date: 20101213
  Receipt Date: 20101129
  Transmission Date: 20110411
  Serious: Yes (Hospitalization, Other)
  Sender: FDA-Public Use
  Company Number: US-ROCHE-724603

PATIENT
  Sex: Male
  Weight: 81.6 kg

DRUGS (2)
  1. ACCUTANE [Suspect]
     Route: 065
     Dates: start: 19990101, end: 19990604
  2. ACCUTANE [Suspect]
     Route: 065
     Dates: start: 20000516

REACTIONS (7)
  - COLITIS ULCERATIVE [None]
  - DRY SKIN [None]
  - ECZEMA NUMMULAR [None]
  - FOLLICULITIS [None]
  - INFLAMMATORY BOWEL DISEASE [None]
  - INTESTINAL HAEMORRHAGE [None]
  - LIP DRY [None]
